FAERS Safety Report 9640389 (Version 2)
Quarter: 2014Q3

REPORT INFORMATION
  Report Type: Spontaneous
  Country: US (occurrence: US)
  Receive Date: 20131023
  Receipt Date: 20140716
  Transmission Date: 20150326
  Serious: Yes (Death, Hospitalization, Disabling, Other)
  Sender: FDA-Public Use
  Company Number: US-009507513-1310USA008748

PATIENT
  Sex: Male
  Weight: 77.98 kg

DRUGS (1)
  1. JANUVIA [Suspect]
     Active Substance: SITAGLIPTIN PHOSPHATE
     Indication: TYPE 2 DIABETES MELLITUS
     Dosage: 100 MG, QD
     Route: 048
     Dates: start: 20080630, end: 20120816

REACTIONS (11)
  - Balance disorder [Unknown]
  - Neuropathy peripheral [Unknown]
  - Hypotension [Unknown]
  - Diarrhoea [Unknown]
  - Fall [Unknown]
  - Pyrexia [Unknown]
  - Pancreatic carcinoma stage IV [Fatal]
  - Syncope [Unknown]
  - Hypotension [Unknown]
  - Pancytopenia [Not Recovered/Not Resolved]
  - Dermabrasion [Unknown]

NARRATIVE: CASE EVENT DATE: 20101013
